FAERS Safety Report 5284323-2 (Version None)
Quarter: 2007Q1

REPORT INFORMATION
  Report Type: 
  Country: None (occurrence: None)
  Receive Date: 20070327
  Receipt Date: 20070319
  Transmission Date: 20070707
  Serious: No
  Sender: FDA-Public Use
  Company Number: 2007-156029-NL

PATIENT
  Age: 62 Year
  Sex: Female

DRUGS (8)
  1. DEXAMETHASONE [Suspect]
     Dosage: DF
  2. FENTANYL [Suspect]
     Dosage: DF
  3. ONDANSETRON [Suspect]
     Dosage: DF
  4. PROPOFOL [Suspect]
     Dosage: DF
  5. SUCCINYLCHOLINE CHLORIDE [Suspect]
     Indication: MUSCLE RELAXANT THERAPY
     Dosage: 100 MG, INTRAVENOUS NOS
     Route: 042
  6. FUROSEMIDE [Concomitant]
  7. SIMVASTATIN [Concomitant]
  8. SALBUTAMOL [Concomitant]

REACTIONS (2)
  - ANAESTHETIC COMPLICATION [None]
  - CARDIAC ARREST [None]
